FAERS Safety Report 11802214 (Version 2)
Quarter: 2015Q4

REPORT INFORMATION
  Report Type: Spontaneous
  Country: AU (occurrence: AU)
  Receive Date: 20151204
  Receipt Date: 20151210
  Transmission Date: 20160305
  Serious: Yes (Other)
  Sender: FDA-Public Use
  Company Number: AU-PFIZER INC-2015422576

PATIENT
  Age: 75 Year
  Sex: Female

DRUGS (4)
  1. MACU VISION [Concomitant]
     Dosage: UNK
  2. SOMAC [Suspect]
     Active Substance: PANTOPRAZOLE SODIUM
     Indication: GASTRIC ULCER
     Dosage: 40 MG, DAILY
     Route: 048
  3. KARVEA [Concomitant]
     Active Substance: IRBESARTAN
     Dosage: UNK
  4. PANADOL [Concomitant]
     Active Substance: ACETAMINOPHEN
     Dosage: UNK

REACTIONS (3)
  - Emotional distress [Unknown]
  - Immune system disorder [Unknown]
  - Renal disorder [Unknown]
